FAERS Safety Report 6253004-0 (Version None)
Quarter: 2009Q2

REPORT INFORMATION
  Report Type: 
  Country: None (occurrence: None)
  Receive Date: 20090629
  Receipt Date: 20090629
  Transmission Date: 20091009
  Serious: Yes (Hospitalization)
  Sender: FDA-Public Use
  Company Number: None

PATIENT
  Age: 49 Year
  Sex: Male

DRUGS (1)
  1. KDUR 20 MEQ [Suspect]
     Indication: HYPOKALAEMIA
     Dosage: 1 TABLET TWICE DAILY PO
     Route: 048
     Dates: start: 20090515, end: 20090527

REACTIONS (1)
  - BLOOD POTASSIUM INCREASED [None]
